FAERS Safety Report 9828479 (Version 1)
Quarter: 2013Q4

REPORT INFORMATION
  Report Type: Spontaneous
  Country: US (occurrence: None)
  Receive Date: 20131120
  Receipt Date: 20131120
  Transmission Date: 20140711
  Serious: No
  Sender: FDA-Public Use
  Company Number: 1000049802

PATIENT
  Age: 50 Year
  Sex: Female

DRUGS (2)
  1. VIIBRYD (VILAZODONE HYDROCHLORIDE) [Suspect]
     Indication: ANXIETY
     Dates: end: 20131007
  2. NEFAZODONE [Concomitant]

REACTIONS (3)
  - Heart rate increased [None]
  - Insomnia [None]
  - Off label use [None]
